FAERS Safety Report 4654984-7 (Version None)
Quarter: 2005Q2

REPORT INFORMATION
  Report Type: 
  Country: None (occurrence: None)
  Receive Date: 20050504
  Receipt Date: 20050418
  Transmission Date: 20051028
  Serious: Yes (Life-Threatening, Hospitalization)
  Sender: FDA-Public Use
  Company Number: IMP_0848_2005

PATIENT
  Age: 67 Year
  Sex: Male
  Weight: 122.4712 kg

DRUGS (10)
  1. FLUDROCORTISONE [Suspect]
     Indication: HYPOTENSION
     Dosage: 0.1 MG QDAY PO
     Route: 048
     Dates: start: 20041020, end: 20041022
  2. LIPITOR [Concomitant]
  3. FLOMAX [Concomitant]
  4. ALLOPURINOL [Concomitant]
  5. LEXAPRO [Concomitant]
  6. NEXIUM [Concomitant]
  7. ASPIRIN [Concomitant]
  8. XANAX [Concomitant]
  9. FOLIC ACID [Concomitant]
  10. VITAMIN B 50 [Concomitant]

REACTIONS (6)
  - CARDIAC DISORDER [None]
  - DYSPNOEA [None]
  - PRURITUS [None]
  - SWOLLEN TONGUE [None]
  - TRACHEAL OEDEMA [None]
  - URTICARIA [None]
